FAERS Safety Report 5159583-9 (Version None)
Quarter: 2006Q4

REPORT INFORMATION
  Report Type: 
  Country: None (occurrence: None)
  Receive Date: 20061120
  Receipt Date: 20061102
  Transmission Date: 20070319
  Serious: Yes (Other)
  Sender: FDA-Public Use
  Company Number: US-2006-033588

PATIENT
  Age: 60 Year
  Sex: Female

DRUGS (1)
  1. BETASERON [Suspect]
     Indication: MULTIPLE SCLEROSIS
     Dosage: SUBCUTANEOUS, SEE IMAGE
     Route: 058
     Dates: start: 20031016, end: 20050521

REACTIONS (2)
  - INJECTION SITE BRUISING [None]
  - RHEUMATOID ARTHRITIS [None]
